FAERS Safety Report 10193098 (Version 2)
Quarter: 2014Q2

REPORT INFORMATION
  Report Type: Spontaneous
  Country: US (occurrence: US)
  Receive Date: 20140524
  Receipt Date: 20140524
  Transmission Date: 20141212
  Serious: No
  Sender: FDA-Public Use
  Company Number: US-SANOFI-AVENTIS-2013SA023006

PATIENT
  Sex: 0

DRUGS (3)
  1. LANTUS [Suspect]
     Dates: start: 20121106, end: 20130321
  2. GLYBURIDE [Concomitant]
  3. METFORMIN [Concomitant]

REACTIONS (4)
  - Anxiety [Unknown]
  - Depression [Unknown]
  - Injection site pain [Unknown]
  - Blood glucose decreased [Recovered/Resolved]
